FAERS Safety Report 13952545 (Version 1)
Quarter: 2017Q3

REPORT INFORMATION
  Report Type: Spontaneous
  Country: US (occurrence: US)
  Receive Date: 20170911
  Receipt Date: 20170911
  Transmission Date: 20171128
  Serious: No
  Sender: FDA-Public Use
  Company Number: US-TEVA-739748ACC

PATIENT
  Sex: Male

DRUGS (1)
  1. FENTANYL. [Suspect]
     Active Substance: FENTANYL
     Indication: PRODUCT USED FOR UNKNOWN INDICATION

REACTIONS (7)
  - Wrong technique in product usage process [Unknown]
  - Erythema [Unknown]
  - Pruritus [Unknown]
  - Urticaria [Unknown]
  - Burning sensation [Unknown]
  - Product physical issue [Unknown]
  - Skin burning sensation [Unknown]
